FAERS Safety Report 14563513 (Version 2)
Quarter: 2019Q1

REPORT INFORMATION
  Report Type: Report from Study
  Country: CA (occurrence: CA)
  Receive Date: 20180222
  Receipt Date: 20190306
  Transmission Date: 20190417
  Serious: Yes (Other)
  Sender: FDA-Public Use
  Company Number: PHHY2017CA097750

PATIENT
  Sex: Male

DRUGS (3)
  1. GLEEVEC [Suspect]
     Active Substance: IMATINIB MESYLATE
     Dosage: 400 MG, QD
     Route: 048
  2. GLEEVEC [Suspect]
     Active Substance: IMATINIB MESYLATE
     Indication: CHRONIC MYELOID LEUKAEMIA
     Dosage: 400 MG, QD
     Route: 048
     Dates: start: 20170314
  3. GLEEVEC [Suspect]
     Active Substance: IMATINIB MESYLATE
     Dosage: 400 MG, QOD (EVERY OTHER DAY)
     Route: 048

REACTIONS (23)
  - Blister [Recovered/Resolved]
  - Burning sensation [Unknown]
  - Pain [Unknown]
  - Lip dry [Not Recovered/Not Resolved]
  - Oral mucosal blistering [Unknown]
  - Pruritus [Unknown]
  - Headache [Recovering/Resolving]
  - Oral pain [Unknown]
  - Blood thyroid stimulating hormone increased [Unknown]
  - Skin disorder [Unknown]
  - Dizziness [Unknown]
  - Onychoclasis [Unknown]
  - Rash [Recovering/Resolving]
  - Dry skin [Unknown]
  - Dry mouth [Unknown]
  - Muscle spasms [Recovered/Resolved]
  - Muscle spasms [Unknown]
  - Arthralgia [Unknown]
  - Blister [Unknown]
  - Loss of consciousness [Unknown]
  - Nausea [Not Recovered/Not Resolved]
  - Pigmentation disorder [Unknown]
  - Vomiting [Unknown]

NARRATIVE: CASE EVENT DATE: 2017
